FAERS Safety Report 20758796 (Version 1)
Quarter: 2022Q2

REPORT INFORMATION
  Report Type: Spontaneous
  Country: US (occurrence: US)
  Receive Date: 20220427
  Receipt Date: 20220427
  Transmission Date: 20220721
  Serious: Yes (Death, Other)
  Sender: FDA-Public Use
  Company Number: US-KYOWAKIRIN-2022BKK005807

PATIENT

DRUGS (1)
  1. NOURIANZ [Suspect]
     Active Substance: ISTRADEFYLLINE
     Indication: Parkinson^s disease
     Dosage: 20 MG, DAILY VIA PEG TUBE
     Route: 065
     Dates: start: 202203, end: 2022

REACTIONS (2)
  - Death [Fatal]
  - Incorrect route of product administration [Unknown]

NARRATIVE: CASE EVENT DATE: 20220301
